FAERS Safety Report 8614947-3 (Version None)
Quarter: 2012Q3

REPORT INFORMATION
  Report Type: 
  Country: None (occurrence: None)
  Receive Date: 20120809
  Receipt Date: 20120725
  Transmission Date: 20120928
  Serious: Yes (Death, Other)
  Sender: FDA-Public Use
  Company Number: 2012MA009107

PATIENT
  Age: 29 Year
  Sex: Male

DRUGS (2)
  1. KADIAN [Suspect]
     Dosage: PARN
     Route: 051
  2. ETHANOL [Suspect]
     Dosage: PARN
     Route: 051

REACTIONS (7)
  - PUPIL FIXED [None]
  - LEFT VENTRICULAR HYPERTROPHY [None]
  - BLOOD PH DECREASED [None]
  - CARDIOMEGALY [None]
  - CARDIO-RESPIRATORY ARREST [None]
  - TOXICITY TO VARIOUS AGENTS [None]
  - UNRESPONSIVE TO STIMULI [None]
